FAERS Safety Report 10507518 (Version 1)
Quarter: 2014Q3

REPORT INFORMATION
  Report Type: Spontaneous
  Country: US (occurrence: None)
  Receive Date: 20140915
  Receipt Date: 20140915
  Transmission Date: 20150326
  Serious: Yes (Other)
  Sender: FDA-Public Use
  Company Number: 2014-US-003812

PATIENT
  Age: 56 Year
  Sex: Female

DRUGS (1)
  1. XYREM [Suspect]
     Active Substance: SODIUM OXYBATE
     Indication: NARCOLEPSY
     Route: 048
     Dates: start: 201403, end: 201403

REACTIONS (8)
  - Energy increased [None]
  - Tinnitus [None]
  - Headache [None]
  - Weight decreased [None]
  - Migraine [None]
  - Upper-airway cough syndrome [None]
  - Dysgeusia [None]
  - Limb discomfort [None]

NARRATIVE: CASE EVENT DATE: 201403
